FAERS Safety Report 4774528-9 (Version None)
Quarter: 2005Q3

REPORT INFORMATION
  Report Type: 
  Country: None (occurrence: None)
  Receive Date: 20050919
  Receipt Date: 20050919
  Transmission Date: 20060218
  Serious: Yes (Life-Threatening)
  Sender: FDA-Public Use
  Company Number: None

PATIENT
  Age: 35 Year
  Sex: Female
  Weight: 54.4316 kg

DRUGS (2)
  1. PROGESTONE IN OIL 50MG/ML PROFESSIONAL PHARMACY [Suspect]
     Indication: IN VITRO FERTILISATION
     Dosage: 1 ML DAILY IM
     Route: 030
     Dates: start: 20041215, end: 20050330
  2. REPRONEX [Concomitant]

REACTIONS (4)
  - ERYTHEMA [None]
  - PHARMACEUTICAL PRODUCT COMPLAINT [None]
  - POOR QUALITY DRUG ADMINISTERED [None]
  - SWELLING [None]
